FAERS Safety Report 18634335 (Version 1)
Quarter: 2020Q4

REPORT INFORMATION
  Report Type: Spontaneous
  Country: AT (occurrence: AT)
  Receive Date: 20201218
  Receipt Date: 20201218
  Transmission Date: 20210114
  Serious: Yes (Other)
  Sender: FDA-Public Use
  Company Number: AT-TEVA-2020-AT-1861146

PATIENT
  Sex: Female

DRUGS (23)
  1. BENDAMUSTINE HYDROCHLORIDE. [Suspect]
     Active Substance: BENDAMUSTINE HYDROCHLORIDE
     Indication: B-CELL LYMPHOMA
     Dosage: (6 CYCLES AS R-BENDA, THEN MAINTENANCE 5 TIMES)
     Route: 042
     Dates: start: 20110121
  2. POLATUZUMAB VEDOTIN. [Suspect]
     Active Substance: POLATUZUMAB VEDOTIN
     Indication: B-CELL LYMPHOMA
     Dosage: 90.9 MG = 1.8 MG/KG IN NACL 0.9% 100 ML BAG OF POLYOLEFIN FRESENIUS I.V., 1H30 MIN,
     Route: 042
     Dates: start: 20190614
  3. POLATUZUMAB VEDOTIN. [Suspect]
     Active Substance: POLATUZUMAB VEDOTIN
     Dosage: 88.2 MG = 1.8 MG/KG IN NACL 0.9% 100 ML SACHET OF POLYOLEFIN FRESENIUS I.V., 1H30 MIN
     Route: 042
     Dates: start: 20190711
  4. MABTHERA [Suspect]
     Active Substance: RITUXIMAB
     Dosage: 548 MG = 375 MG/M2 IN NACL 0.9% 500 ML SACHET OF POLYOLEFIN FRESENIUS I.V.
     Route: 042
     Dates: start: 20190710
  5. MABTHERA [Suspect]
     Active Substance: RITUXIMAB
     Dosage: NPP 533.48MG=375MG/M2 AD 533ML FROM NACL 0.9% 500ML SACHET OF POLYOLEFIN FRESENIUS IV
     Route: 042
     Dates: start: 20191115
  6. POLATUZUMAB VEDOTIN. [Suspect]
     Active Substance: POLATUZUMAB VEDOTIN
     Dosage: 86.4 MG = 1.8 MG/KG IN NACL 0.9% 100 ML SACHET OF POLYOLEFIN FRESENIUS I.V., 1H30 MIN,
     Route: 042
     Dates: start: 20190911
  7. PREDNISOLONE. [Suspect]
     Active Substance: PREDNISOLONE
     Indication: B-CELL LYMPHOMA
     Dosage: (4X AS R-MINICHOP)
     Route: 065
     Dates: start: 20180820
  8. MABTHERA [Suspect]
     Active Substance: RITUXIMAB
     Dosage: 555 MG = 99.99% = 374.95 MG/M2 IN NACL 0.9% 500 ML BAG OF POLYOLEFIN FRESENIUS I.V.
     Route: 042
     Dates: start: 20190613
  9. MABTHERA [Suspect]
     Active Substance: RITUXIMAB
     Dosage: NPP 543.22MG = 375MG/M2 AD 543ML FROM NACL0.9% 500 ML BAG OF POLYOLEFIN FRESENIUS IV.
     Route: 042
     Dates: start: 20190911
  10. MABTHERA [Suspect]
     Active Substance: RITUXIMAB
     Dosage: 533.48 MG = 375MG/M2 AD 533 ML FROM NACL 0.9% 500 ML BAG OF POLYOLEFIN FRESENIUS I.V.
     Route: 042
     Dates: start: 20191025
  11. DIFICLIR [Concomitant]
     Active Substance: FIDAXOMICIN
     Indication: PRODUCT USED FOR UNKNOWN INDICATION
     Route: 065
  12. DOXORUBICIN HYDROCHLORIDE. [Suspect]
     Active Substance: DOXORUBICIN HYDROCHLORIDE
     Indication: B-CELL LYMPHOMA
     Dosage: (4X AS R-MINICHOP)
     Route: 065
     Dates: start: 20180820
  13. POLATUZUMAB VEDOTIN. [Suspect]
     Active Substance: POLATUZUMAB VEDOTIN
     Dosage: 82.8 MG = 1.8 MG/KG IN NACL 0.9% 100 ML SACHET OF POLYOLEFIN FRESENIUS I.V., 1H30 MIN
     Route: 042
     Dates: start: 20191116
  14. BENDAMUSTINE HYDROCHLORIDE. [Suspect]
     Active Substance: BENDAMUSTINE HYDROCHLORIDE
     Route: 042
     Dates: start: 20121216
  15. MABTHERA [Suspect]
     Active Substance: RITUXIMAB
     Dosage: 4X AS R-MINICHOP)
     Route: 065
     Dates: start: 20180820
  16. MABTHERA [Suspect]
     Active Substance: RITUXIMAB
     Dosage: NPP 557.4 MG = 375 MG/M2 IN NACL 0.9% 500 ML BAG OF POLYOLEFIN FRESENIUS I.V.
     Route: 042
     Dates: start: 20190813
  17. MABTHERA [Suspect]
     Active Substance: RITUXIMAB
     Indication: B-CELL LYMPHOMA
     Route: 065
     Dates: start: 20080507
  18. VINCRISTINE [Suspect]
     Active Substance: VINCRISTINE
     Indication: B-CELL LYMPHOMA
     Dosage: (4X AS R-MINICHOP)
     Route: 065
     Dates: start: 20180820
  19. POLATUZUMAB VEDOTIN. [Suspect]
     Active Substance: POLATUZUMAB VEDOTIN
     Dosage: 91.8 MG = 1.8 MG/KG IN NACL 0.9% 100 ML SACHET OF POLYOLEFIN FRESENIUS I.V., 1H30 MIN,
     Route: 042
     Dates: start: 20190814
  20. MABTHERA [Suspect]
     Active Substance: RITUXIMAB
     Dosage: (6 CYCLES AS R-BENDA, THEN MAINTENANCE 5 TIMES)
     Route: 065
     Dates: start: 20110121
  21. POLATUZUMAB VEDOTIN. [Suspect]
     Active Substance: POLATUZUMAB VEDOTIN
     Dosage: 1.8 MG/KG IN NACL 0.9% 100 ML SACHET OF POLYOLEFIN FRESENIUS I.V., 1H30 MIN,
     Route: 042
     Dates: start: 20191028
  22. ZEVALIN [Suspect]
     Active Substance: IBRITUMOMAB TIUXETAN
     Indication: NON-HODGKIN^S LYMPHOMA
     Route: 065
     Dates: start: 20090626
  23. CYCLOPHOSPHAMIDE. [Suspect]
     Active Substance: CYCLOPHOSPHAMIDE
     Indication: B-CELL LYMPHOMA
     Dosage: 4X AS R-MINICHOP
     Route: 065
     Dates: start: 20180820

REACTIONS (24)
  - Disease recurrence [Unknown]
  - Tumour ulceration [Recovered/Resolved]
  - Fall [Unknown]
  - Oesophageal candidiasis [Recovered/Resolved]
  - Hypertension [Unknown]
  - Gastric cancer [Recovered/Resolved]
  - Cardiomyopathy [Unknown]
  - Clostridium difficile colitis [Recovered/Resolved]
  - Deep vein thrombosis [Unknown]
  - Acute myocardial infarction [Unknown]
  - Pneumonia influenzal [Recovered/Resolved]
  - Rash pruritic [Recovered/Resolved]
  - Klebsiella infection [Recovered/Resolved]
  - Weight decreased [Recovered/Resolved]
  - Dyspepsia [Recovered/Resolved]
  - Aortic stenosis [Unknown]
  - Dyspnoea [Recovered/Resolved]
  - Thrombophlebitis superficial [Unknown]
  - Chronic obstructive pulmonary disease [Recovered/Resolved]
  - Staphylococcal bacteraemia [Recovered/Resolved]
  - Lymphoma transformation [Unknown]
  - Tricuspid valve incompetence [Unknown]
  - Body temperature [Recovered/Resolved]
  - Mitral valve incompetence [Unknown]

NARRATIVE: CASE EVENT DATE: 20170111
